FAERS Safety Report 7996303-4 (Version None)
Quarter: 2011Q4

REPORT INFORMATION
  Report Type: 
  Country: None (occurrence: None)
  Receive Date: 20111220
  Receipt Date: 20111216
  Transmission Date: 20120403
  Serious: Yes (Hospitalization)
  Sender: FDA-Public Use
  Company Number: JP-ABBOTT-11P-087-0879892-00

PATIENT
  Sex: Female

DRUGS (5)
  1. FOLIC ACID [Concomitant]
     Indication: RHEUMATOID ARTHRITIS
     Dosage: ONE DOSAGE FORM DAILY
     Route: 048
     Dates: start: 20040317, end: 20111121
  2. ETODOLAC [Concomitant]
     Indication: RHEUMATOID ARTHRITIS
     Route: 048
     Dates: start: 20040317, end: 20111122
  3. HUMIRA [Suspect]
     Indication: RHEUMATOID ARTHRITIS
     Route: 058
     Dates: start: 20110826, end: 20111118
  4. PREDNISOLONE [Suspect]
     Indication: RHEUMATOID ARTHRITIS
     Dosage: FOUR DOSAGE FORMS DAILY
     Route: 048
     Dates: start: 20040317, end: 20111122
  5. RHEUMATREX [Suspect]
     Indication: RHEUMATOID ARTHRITIS
     Dosage: 1-2 MG
     Route: 048
     Dates: start: 20040317, end: 20111122

REACTIONS (2)
  - CHEST X-RAY ABNORMAL [None]
  - PNEUMONIA [None]
